FAERS Safety Report 15367390 (Version 1)
Quarter: 2018Q3

REPORT INFORMATION
  Report Type: Spontaneous
  Country: US (occurrence: US)
  Receive Date: 20180910
  Receipt Date: 20180910
  Transmission Date: 20181010
  Serious: Yes (Other)
  Sender: FDA-Public Use
  Company Number: US-UCBSA-2018035682

PATIENT
  Age: 30 Year
  Sex: Female
  Weight: 47.62 kg

DRUGS (6)
  1. TERBUTALINE [Concomitant]
     Active Substance: TERBUTALINE
     Indication: FALSE LABOUR
  2. VIMPAT [Suspect]
     Active Substance: LACOSAMIDE
     Indication: PARTIAL SEIZURES
     Dosage: 250 MG, 2X/DAY (BID)
     Dates: start: 2008
  3. MAGNESIUM SULFATE. [Concomitant]
     Active Substance: MAGNESIUM SULFATE
     Indication: FALSE LABOUR
  4. PROCARDIA [Concomitant]
     Active Substance: NIFEDIPINE
     Indication: FALSE LABOUR
  5. KLONOPIN [Concomitant]
     Active Substance: CLONAZEPAM
     Indication: SEIZURE
     Dosage: 1 MG, ONCE DAILY (QD)
  6. AMBIEN [Concomitant]
     Active Substance: ZOLPIDEM TARTRATE
     Indication: SLEEP DISORDER
     Dosage: UNK, AS NEEDED (PRN)

REACTIONS (7)
  - Overdose [Unknown]
  - Amnesia [Not Recovered/Not Resolved]
  - Pregnancy [Unknown]
  - Breast feeding [Unknown]
  - Premature delivery [Unknown]
  - False labour [Unknown]
  - Off label use [Unknown]

NARRATIVE: CASE EVENT DATE: 2008
